FAERS Safety Report 9092218 (Version 1)
Quarter: 2013Q1

REPORT INFORMATION
  Report Type: Spontaneous
  Country: US (occurrence: US)
  Receive Date: 20130131
  Receipt Date: 20130131
  Transmission Date: 20140127
  Serious: Yes (Other)
  Sender: FDA-Public Use
  Company Number: PHEH2013US002306

PATIENT
  Sex: Female

DRUGS (4)
  1. ZOMETA [Suspect]
     Dates: start: 201002
  2. ABRAXANE [Concomitant]
     Dosage: UNK UKN, UNK
  3. XELODA [Concomitant]
     Dosage: UNK UKN, UNK
  4. PRILOSEC [Concomitant]
     Dosage: UNK UKN, UNK

REACTIONS (8)
  - Pelvic fracture [Not Recovered/Not Resolved]
  - Palmar-plantar erythrodysaesthesia syndrome [Not Recovered/Not Resolved]
  - Skin hypertrophy [Not Recovered/Not Resolved]
  - Skin irritation [Not Recovered/Not Resolved]
  - Onychomycosis [Not Recovered/Not Resolved]
  - Gastrooesophageal reflux disease [Not Recovered/Not Resolved]
  - Neuropathy peripheral [Not Recovered/Not Resolved]
  - Vision blurred [Not Recovered/Not Resolved]
